FAERS Safety Report 6824635-1 (Version None)
Quarter: 2010Q3

REPORT INFORMATION
  Report Type: 
  Country: None (occurrence: None)
  Receive Date: 20100708
  Receipt Date: 20061108
  Transmission Date: 20110219
  Serious: No
  Sender: FDA-Public Use
  Company Number: US-PFIZER INC-2006138817

PATIENT
  Sex: Male
  Weight: 76.2 kg

DRUGS (4)
  1. CHANTIX [Suspect]
     Indication: EX-TOBACCO USER
     Dosage: 0.5MG AM AND 1MG PM,BID
     Dates: start: 20061031
  2. VIREAD [Concomitant]
     Indication: HIV INFECTION
  3. SUSTIVA [Concomitant]
     Indication: HIV INFECTION
  4. DIDANOSINE [Concomitant]
     Indication: HIV INFECTION

REACTIONS (2)
  - DYSGEUSIA [None]
  - INSOMNIA [None]
